FAERS Safety Report 6255968-8 (Version None)
Quarter: 2009Q3

REPORT INFORMATION
  Report Type: 
  Country: None (occurrence: None)
  Receive Date: 20090706
  Receipt Date: 20090630
  Transmission Date: 20100115
  Serious: Yes (Hospitalization)
  Sender: FDA-Public Use
  Company Number: IE-BRISTOL-MYERS SQUIBB COMPANY-14685580

PATIENT
  Age: 83 Year
  Sex: Female

DRUGS (4)
  1. HYDREA [Suspect]
  2. ELTROXIN [Concomitant]
  3. ESOMEPRAZOLE MAGNESIUM [Concomitant]
  4. CORDARONE [Concomitant]

REACTIONS (3)
  - CELLULITIS [None]
  - HAEMATOMA [None]
  - RENAL FAILURE [None]
